FAERS Safety Report 18108429 (Version 2)
Quarter: 2020Q3

REPORT INFORMATION
  Report Type: Other
  Country: CN (occurrence: CN)
  Receive Date: 20200804
  Receipt Date: 20200804
  Transmission Date: 20201103
  Serious: Yes (Death, Other)
  Sender: FDA-Public Use
  Company Number: CN-ROCHE-2648991

PATIENT

DRUGS (10)
  1. DOCETAXEL. [Suspect]
     Active Substance: DOCETAXEL
     Dosage: DURING NEOADJUVANT THERAPY, 10 CASES OF DOCETAXEL PLUS FLUOROURACIL AND 1 CASE OF DOCETAXEL MONOTHER
     Route: 065
  2. FLUOROURACIL. [Suspect]
     Active Substance: FLUOROURACIL
     Dosage: AS PART OF 10 CASES OF DOCETAXEL PLUS FLUOROURACIL DURING NEOADJUVANT THERAPY AND AS PART OF 25 CASE
     Route: 065
  3. TEGAFUR GIMERACIL AND OTERACIL POTASSIUM [Suspect]
     Active Substance: GIMERACIL\OTERACIL\TEGAFUR
     Dosage: AS PART OF MONOTHERAPY (S?1 CAPSULE) AND AS PART OF DOCETAXEL PLUS S?1 CAPSULE DURING ADJUVANT THERA
     Route: 048
  4. CAPECITABINE. [Suspect]
     Active Substance: CAPECITABINE
     Indication: GASTRIC CANCER
     Dosage: D1?D14, EVERY 3 WEEK AS NEOADJUVANT AND ADJUVANT CHEMOTHERAPY (XELOX THERAPY)
     Route: 048
  5. CAPECITABINE. [Suspect]
     Active Substance: CAPECITABINE
     Dosage: GIVEN IN SOME PATIENTS AS ADJUVANT MONOCHEMOTHERAPY
     Route: 048
  6. FLUOROURACIL. [Suspect]
     Active Substance: FLUOROURACIL
     Indication: GASTRIC CANCER
     Dosage: OVER 48 HR AS PART OF FOLFOX AND MFLOT CHEMOTHERAPY DURING BOTH NEOADJUVANT AND ADJUVANT REGIMEN
     Route: 042
  7. TEGAFUR GIMERACIL AND OTERACIL POTASSIUM [Suspect]
     Active Substance: GIMERACIL\OTERACIL\TEGAFUR
     Indication: GASTRIC CANCER
     Dosage: 40?60 MG D1?D14, EVERY 3 WEEK AS PART OF SOX THERAPY IN BOTH NEOADJUVANT AND ADJUVANT CHEMOTHERAPY
     Route: 048
  8. DOCETAXEL. [Suspect]
     Active Substance: DOCETAXEL
     Indication: GASTRIC CANCER
     Dosage: 50?60 MG/M2 AS PART OF BOTH NEOADJUVANT AND ADJUVANT MFLOT THERAPY
     Route: 065
  9. OXALIPLATIN. [Suspect]
     Active Substance: OXALIPLATIN
     Dosage: AS PART OF MFLOT ARM AND FOLFOX ARM DURING BOTH NEOADJUVANT AND ADJUVANT CHEMOTHERAPY
     Route: 065
  10. OXALIPLATIN. [Suspect]
     Active Substance: OXALIPLATIN
     Indication: GASTRIC CANCER
     Dosage: AS PART OF SOX AND XELOX ARM DURING BOTH NEOADJUVANT AND ADJUVANT THERAPY
     Route: 042

REACTIONS (8)
  - Thrombocytopenia [Unknown]
  - Febrile neutropenia [Unknown]
  - Abdominal abscess [Recovered/Resolved]
  - Diarrhoea [Unknown]
  - Pneumonia [Fatal]
  - Neutropenia [Unknown]
  - Anaemia [Unknown]
  - Diabetes mellitus [Unknown]
